FAERS Safety Report 9105632 (Version 1)
Quarter: 2013Q1

REPORT INFORMATION
  Report Type: Report from Study
  Country: AU (occurrence: AU)
  Receive Date: 20130220
  Receipt Date: 20130220
  Transmission Date: 20140127
  Serious: Yes (Death, Hospitalization, Other)
  Sender: FDA-Public Use
  Company Number: PHHY2013AU016754

PATIENT
  Age: 59 Year
  Sex: Female

DRUGS (1)
  1. CLOZARIL [Suspect]
     Dosage: 200 MG UNK
     Dates: start: 20040112

REACTIONS (8)
  - Cardio-respiratory arrest [Fatal]
  - Chronic obstructive pulmonary disease [Unknown]
  - Urosepsis [Unknown]
  - Renal failure chronic [Unknown]
  - Diabetes mellitus [Unknown]
  - Obesity [Unknown]
  - White blood cell count increased [Unknown]
  - Metabolic disorder [Unknown]
